FAERS Safety Report 20610405 (Version 1)
Quarter: 2022Q1

REPORT INFORMATION
  Report Type: Report from Study
  Country: CL (occurrence: CL)
  Receive Date: 20220318
  Receipt Date: 20220318
  Transmission Date: 20220423
  Serious: Yes (Other)
  Sender: FDA-Public Use
  Company Number: CL-NOVARTISPH-NVSC2021CL037281

PATIENT
  Sex: Male

DRUGS (5)
  1. COSENTYX [Suspect]
     Active Substance: SECUKINUMAB
     Indication: Psoriatic arthropathy
     Dosage: 150 MG, QMO
     Route: 058
     Dates: start: 20210203
  2. COSENTYX [Suspect]
     Active Substance: SECUKINUMAB
     Dosage: 150 MG
     Route: 058
  3. COSENTYX [Suspect]
     Active Substance: SECUKINUMAB
     Dosage: UNK(TWO DOSES APR, MAY)
     Route: 065
  4. COSENTYX [Suspect]
     Active Substance: SECUKINUMAB
     Dosage: 150 MG
     Route: 065
     Dates: start: 20210611
  5. COSENTYX [Suspect]
     Active Substance: SECUKINUMAB
     Dosage: 150 MG(TWO MONTHS AGO)
     Route: 058

REACTIONS (10)
  - Infarction [Unknown]
  - Renal cyst [Unknown]
  - Illness [Unknown]
  - Hypersensitivity [Not Recovered/Not Resolved]
  - Paraesthesia [Unknown]
  - Feeling abnormal [Unknown]
  - Gastric disorder [Unknown]
  - Swelling [Unknown]
  - Hypoaesthesia [Unknown]
  - Gastritis [Unknown]
